FAERS Safety Report 11696983 (Version 1)
Quarter: 2015Q4

REPORT INFORMATION
  Report Type: Spontaneous
  Country: CA (occurrence: CA)
  Receive Date: 20151104
  Receipt Date: 20151104
  Transmission Date: 20160304
  Serious: Yes (Life-Threatening)
  Sender: FDA-Public Use
  Company Number: CA-TEVA-605381ACC

PATIENT
  Age: 53 Year
  Sex: Female

DRUGS (18)
  1. AMINO COMPLEX [Concomitant]
  2. TIZANIDINE. [Concomitant]
     Active Substance: TIZANIDINE
  3. DOCUSATE [Concomitant]
     Active Substance: DOCUSATE
  4. METAMUCIL [Concomitant]
     Active Substance: PLANTAGO SEED
  5. MULTIVITAMINE(S) [Concomitant]
  6. CIPROFLOXACIN INJECTION USP [Suspect]
     Active Substance: CIPROFLOXACIN
     Indication: PNEUMONIA
     Dosage: 800 MILLIGRAM DAILY;
     Route: 042
  7. METRONIDAZOLE. [Concomitant]
     Active Substance: METRONIDAZOLE
  8. VITAMIN E [Concomitant]
     Active Substance: .ALPHA.-TOCOPHEROL
  9. SELENIUM [Concomitant]
     Active Substance: SELENIUM
  10. OXYBUTYNIN [Concomitant]
     Active Substance: OXYBUTYNIN
  11. SENOKOT [Concomitant]
     Active Substance: SENNOSIDES
  12. VITAMIN B COMPLEX [Concomitant]
     Active Substance: CYANOCOBALAMIN\DEXPANTHENOL\NIACINAMIDE\PYRIDOXINE HYDROCHLORIDE\RIBOFLAVIN 5^-PHOSPHATE SODIUM\THIAMINE HYDROCHLORIDE\VITAMIN B COMPLEX
  13. CALCIUM AND MAGNESIUM [Concomitant]
  14. EVENING PRIMROSE OIL [Concomitant]
     Active Substance: EVENING PRIMROSE OIL
  15. VITAMIN C [Concomitant]
     Active Substance: ASCORBIC ACID
  16. CRANBERRY. [Concomitant]
     Active Substance: CRANBERRY
  17. ETIDROCAL [Concomitant]
  18. VITAMIN D [Concomitant]
     Active Substance: CHOLECALCIFEROL

REACTIONS (5)
  - Dermatitis exfoliative [Recovered/Resolved]
  - Respiratory tract oedema [Recovered/Resolved]
  - Stridor [Recovered/Resolved]
  - Tachycardia [Recovered/Resolved]
  - Skin warm [Recovered/Resolved]
